FAERS Safety Report 13003493 (Version 1)
Quarter: 2016Q4

REPORT INFORMATION
  Report Type: Spontaneous
  Country: RO (occurrence: RO)
  Receive Date: 20161206
  Receipt Date: 20161206
  Transmission Date: 20170207
  Serious: Yes (Other)
  Sender: FDA-Public Use
  Company Number: RO-TOLMAR, INC.-2016RO012789

PATIENT
  Age: 59 Year
  Sex: Male

DRUGS (2)
  1. ELIGARD [Suspect]
     Active Substance: LEUPROLIDE ACETATE
     Indication: PROSTATE CANCER
     Dosage: UNK/ EVERY 6 MONTHS
     Route: 065
  2. BICALUTAMID [Concomitant]
     Active Substance: BICALUTAMIDE

REACTIONS (3)
  - Pulmonary fibrosis [Unknown]
  - Gynaecomastia [Unknown]
  - Thyroid disorder [Unknown]
